FAERS Safety Report 9239178 (Version 2)
Quarter: 2014Q1

REPORT INFORMATION
  Report Type: Report from Study
  Country: JP (occurrence: JP)
  Receive Date: 20130418
  Receipt Date: 20140128
  Transmission Date: 20141002
  Serious: Yes (Hospitalization)
  Sender: FDA-Public Use
  Company Number: JP-JNJFOC-20130406938

PATIENT
  Age: 62 Year
  Sex: Female
  Weight: 51 kg

DRUGS (11)
  1. SIMPONI [Suspect]
     Indication: RHEUMATOID ARTHRITIS
     Route: 058
     Dates: start: 20120711
  2. SIMPONI [Suspect]
     Indication: RHEUMATOID ARTHRITIS
     Route: 058
     Dates: start: 20130218, end: 20130304
  3. METHOTREXATE [Suspect]
     Indication: RHEUMATOID ARTHRITIS
     Dates: start: 20101220, end: 20130225
  4. PREDNISOLONE [Concomitant]
     Indication: RHEUMATOID ARTHRITIS
     Dates: start: 20120903, end: 20130304
  5. AMLODIN OD [Concomitant]
     Indication: HYPERTENSION
     Route: 048
     Dates: end: 20130303
  6. BLOPRESS [Concomitant]
     Indication: HYPERTENSION
     Route: 048
     Dates: end: 20130303
  7. IPRIFLAVONE [Concomitant]
     Indication: OSTEOPOROSIS
     Route: 048
     Dates: end: 20130303
  8. ALFAROL [Concomitant]
     Indication: OSTEOPOROSIS
     Route: 048
  9. CALCIUM LACTATE [Concomitant]
     Indication: OSTEOPOROSIS
     Route: 048
  10. GASTER [Concomitant]
     Indication: PROPHYLAXIS
     Route: 048
     Dates: end: 20130303
  11. FOLIAMIN [Concomitant]
     Indication: PROPHYLAXIS
     Route: 048
     Dates: end: 20130227

REACTIONS (1)
  - Pneumocystis jirovecii pneumonia [Recovered/Resolved]
